FAERS Safety Report 17799927 (Version 2)
Quarter: 2021Q1

REPORT INFORMATION
  Report Type: Spontaneous
  Country: US (occurrence: US)
  Receive Date: 20200518
  Receipt Date: 20210206
  Transmission Date: 20210419
  Serious: No
  Sender: FDA-Public Use
  Company Number: US-009507513-2005USA003691

PATIENT
  Age: 39 Year
  Sex: Male

DRUGS (5)
  1. REMERON [Suspect]
     Active Substance: MIRTAZAPINE
     Indication: SUICIDAL IDEATION
  2. REMERON [Suspect]
     Active Substance: MIRTAZAPINE
     Indication: FEELING OF DESPAIR
  3. REMERON [Suspect]
     Active Substance: MIRTAZAPINE
     Indication: ILLUSION
  4. REMERON [Suspect]
     Active Substance: MIRTAZAPINE
     Indication: BIPOLAR DISORDER
  5. REMERON [Suspect]
     Active Substance: MIRTAZAPINE
     Indication: ANHEDONIA
     Dosage: 15 MILLIGRAM, QHS (EVERY NIGHT AT BEDTIME)
     Route: 048

REACTIONS (1)
  - Product use in unapproved indication [Unknown]
